FAERS Safety Report 4644028-5 (Version None)
Quarter: 2005Q2

REPORT INFORMATION
  Report Type: 
  Country: None (occurrence: None)
  Receive Date: 20050331
  Receipt Date: 20050217
  Transmission Date: 20051028
  Serious: No
  Sender: FDA-Public Use
  Company Number: 05P-163-0291087-00

PATIENT
  Age: 69 Year
  Sex: Female
  Weight: 91.6266 kg

DRUGS (10)
  1. HUMIRA [Suspect]
     Indication: RHEUMATOID ARTHRITIS
     Dosage: 40 MG, 1 IN 2 WK, SUBCUTANEOUS
     Route: 058
     Dates: start: 20040201
  2. VITAMINS [Concomitant]
  3. ATENOLOL [Concomitant]
  4. PREDNISONE [Concomitant]
  5. NABUMETONE [Concomitant]
  6. ACETAMINOPHEN [Concomitant]
  7. FUROSEMIDE [Concomitant]
  8. HYDROCHLOROTHIAZIDE [Concomitant]
  9. OXYCODONE HCL [Concomitant]
  10. FENTANYL [Concomitant]

REACTIONS (3)
  - OEDEMA PERIPHERAL [None]
  - RASH [None]
  - RASH PAPULAR [None]
